FAERS Safety Report 9293731 (Version 1)
Quarter: 2013Q2

REPORT INFORMATION
  Report Type: Spontaneous
  Country: US (occurrence: US)
  Receive Date: 20130516
  Receipt Date: 20130516
  Transmission Date: 20140414
  Serious: Yes (Other)
  Sender: FDA-Public Use
  Company Number: US-CELGENEUS-163-POMAL-13051460

PATIENT
  Sex: Female

DRUGS (5)
  1. POMALYST [Suspect]
     Indication: PLASMA CELL MYELOMA
     Dosage: 4 MILLIGRAM
     Route: 048
     Dates: start: 201303
  2. POMALYST [Suspect]
     Dosage: 2 MILLIGRAM
     Route: 048
     Dates: start: 201304, end: 20130427
  3. REVLIMID [Suspect]
     Indication: PLASMA CELL MYELOMA
     Dosage: 25 MILLIGRAM
     Route: 048
     Dates: start: 200912
  4. REVLIMID [Suspect]
     Dosage: 15 MILLIGRAM
     Route: 048
     Dates: start: 201105
  5. REVLIMID [Suspect]
     Dosage: 10 MILLIGRAM
     Route: 048
     Dates: start: 201205, end: 2012

REACTIONS (2)
  - Lung neoplasm malignant [Not Recovered/Not Resolved]
  - Plasma cell myeloma [Not Recovered/Not Resolved]
